FAERS Safety Report 14224115 (Version 1)
Quarter: 2017Q4

REPORT INFORMATION
  Report Type: Spontaneous
  Country: CA (occurrence: CA)
  Receive Date: 20171126
  Receipt Date: 20171126
  Transmission Date: 20180321
  Serious: Yes (Hospitalization, Other)
  Sender: FDA-Public Use
  Company Number: CA-TEVA-2017-CA-827228

PATIENT
  Sex: Female

DRUGS (6)
  1. METHOTREXATE. [Suspect]
     Active Substance: METHOTREXATE
     Indication: PRODUCT USED FOR UNKNOWN INDICATION
     Route: 065
  2. STELARA [Suspect]
     Active Substance: USTEKINUMAB
     Indication: PRODUCT USED FOR UNKNOWN INDICATION
     Route: 065
  3. HUMIRA [Suspect]
     Active Substance: ADALIMUMAB
     Indication: PRODUCT USED FOR UNKNOWN INDICATION
     Route: 065
  4. ENTOCORT [Concomitant]
     Active Substance: BUDESONIDE
  5. PURINETHOL [Suspect]
     Active Substance: MERCAPTOPURINE
     Indication: PRODUCT USED FOR UNKNOWN INDICATION
     Route: 065
  6. CORTISONE [Concomitant]
     Active Substance: CORTISONE\HYDROCORTISONE

REACTIONS (4)
  - Intestinal obstruction [Not Recovered/Not Resolved]
  - Diarrhoea [Unknown]
  - Fatigue [Unknown]
  - Device dislocation [None]
